FAERS Safety Report 6248797-2 (Version None)
Quarter: 2009Q2

REPORT INFORMATION
  Report Type: 
  Country: None (occurrence: None)
  Receive Date: 20090629
  Receipt Date: 20090623
  Transmission Date: 20091009
  Serious: Yes (Hospitalization)
  Sender: FDA-Public Use
  Company Number: DK-ASTRAZENECA-2009SE01409

PATIENT
  Age: 13 Month
  Sex: Male
  Weight: 10.8 kg

DRUGS (2)
  1. SPIROCORT [Suspect]
     Route: 055
  2. AIROMIR [Suspect]

REACTIONS (3)
  - DEVICE OCCLUSION [None]
  - DRUG DOSE OMISSION [None]
  - DYSPNOEA [None]
